FAERS Safety Report 7244256-9 (Version None)
Quarter: 2011Q1

REPORT INFORMATION
  Report Type: 
  Country: None (occurrence: None)
  Receive Date: 20110119
  Receipt Date: 20110119
  Transmission Date: 20110831
  Serious: Yes (Hospitalization)
  Sender: FDA-Public Use
  Company Number: None

PATIENT
  Age: 39 Year
  Sex: Male
  Weight: 94.5 kg

DRUGS (2)
  1. FENTANYL [Suspect]
     Indication: ANAESTHESIA PROCEDURE
     Dosage: 175 MCG ONCE IV
     Route: 042
     Dates: start: 20101206
  2. MIDAZOLAM [Suspect]
     Indication: SEDATIVE THERAPY
     Dosage: 7 MG ONCE IV
     Route: 042
     Dates: start: 20101206

REACTIONS (12)
  - POSTURING [None]
  - UNRESPONSIVE TO STIMULI [None]
  - SCREAMING [None]
  - MUSCULAR WEAKNESS [None]
  - SEDATION [None]
  - TONIC CLONIC MOVEMENTS [None]
  - DECEREBRATION [None]
  - DRUG INEFFECTIVE [None]
  - GRIMACING [None]
  - DYSKINESIA [None]
  - AGITATION [None]
  - ANXIETY [None]
